FAERS Safety Report 12416656 (Version 5)
Quarter: 2016Q3

REPORT INFORMATION
  Report Type: Spontaneous
  Country: GB (occurrence: GB)
  Receive Date: 20160530
  Receipt Date: 20160721
  Transmission Date: 20161109
  Serious: Yes (Other)
  Sender: FDA-Public Use
  Company Number: ALCN2016GB003704

PATIENT
  Age: 83 Year
  Sex: Male
  Weight: 72.5 kg

DRUGS (5)
  1. RAMIPRIL. [Concomitant]
     Active Substance: RAMIPRIL
     Indication: POSTOPERATIVE CARE
     Dosage: 1 DF, QD
     Route: 065
  2. TOBRADEX [Suspect]
     Active Substance: DEXAMETHASONE\TOBRAMYCIN
     Indication: POSTOPERATIVE CARE
     Dosage: 1 GTT, QID
     Route: 047
     Dates: start: 20160507, end: 20160517
  3. ASPIRIN BAYER [Concomitant]
     Active Substance: ASPIRIN
     Indication: POSTOPERATIVE CARE
     Dosage: 1 DF, QD
     Route: 065
  4. BISOPROLOL [Concomitant]
     Active Substance: BISOPROLOL
     Indication: POSTOPERATIVE CARE
     Dosage: 1 DF, QD
     Route: 065
  5. SIMVASTATIN. [Concomitant]
     Active Substance: SIMVASTATIN
     Indication: POSTOPERATIVE CARE
     Dosage: 1 DF, QD
     Route: 065

REACTIONS (12)
  - Pulpitis dental [Recovering/Resolving]
  - Gingival bleeding [Unknown]
  - Toothache [Recovering/Resolving]
  - Dysphagia [Recovering/Resolving]
  - Glossodynia [Recovering/Resolving]
  - Oropharyngeal pain [Recovered/Resolved]
  - Epistaxis [Unknown]
  - Oral pain [Recovering/Resolving]
  - Hypersensitivity [Unknown]
  - Neck pain [Recovering/Resolving]
  - Weight decreased [Recovering/Resolving]
  - Gingival pain [Recovering/Resolving]

NARRATIVE: CASE EVENT DATE: 20160512
